FAERS Safety Report 16365394 (Version 1)
Quarter: 2019Q2

REPORT INFORMATION
  Report Type: Spontaneous
  Country: US (occurrence: US)
  Receive Date: 20190529
  Receipt Date: 20190529
  Transmission Date: 20190711
  Serious: Yes (Death, Hospitalization, Other)
  Sender: FDA-Public Use
  Company Number: US-IMPAX LABORATORIES, LLC-2019-IPXL-01042

PATIENT
  Age: 77 Year
  Sex: Female

DRUGS (3)
  1. OVINE DIGOXIN IMMUNE FAB [Suspect]
     Active Substance: OVINE DIGOXIN IMMUNE FAB
     Indication: TOXICITY TO VARIOUS AGENTS
     Dosage: 40 MILLIGRAM
     Route: 065
  2. OVINE DIGOXIN IMMUNE FAB [Suspect]
     Active Substance: OVINE DIGOXIN IMMUNE FAB
     Dosage: 80 MILLIGRAM
     Route: 065
  3. DIGOXIN. [Suspect]
     Active Substance: DIGOXIN
     Indication: CARDIAC FAILURE CONGESTIVE
     Dosage: UNK
     Route: 065

REACTIONS (6)
  - Toxicity to various agents [Unknown]
  - Cardiac failure congestive [Fatal]
  - Withdrawal syndrome [Unknown]
  - Fall [Unknown]
  - Acute kidney injury [Unknown]
  - Rib fracture [Unknown]
